FAERS Safety Report 8955871 (Version 1)
Quarter: 2012Q4

REPORT INFORMATION
  Report Type: 
  Country: GB (occurrence: None)
  Receive Date: 20121130
  Receipt Date: 20121130
  Transmission Date: 20130627
  Serious: Yes (Other)
  Sender: FDA-Public Use
  Company Number: GB-1195389

PATIENT
  Age: 44 Year
  Sex: Male

DRUGS (3)
  1. MAXIDEX [Suspect]
     Indication: POSTOPERATIVE CARE
     Dosage: (0.3 % QID OS Ophthalmic),
  2. MAXIDEX [Suspect]
     Indication: POSTOPERATIVE CARE
     Dosage: (1 Gtt BID OS Ophthalmic)
  3. EXOCIN [Concomitant]

REACTIONS (4)
  - Keratitis [None]
  - Corneal scar [None]
  - Graft complication [None]
  - Bacterial infection [None]
